FAERS Safety Report 5350947-7 (Version None)
Quarter: 2007Q2

REPORT INFORMATION
  Report Type: 
  Country: None (occurrence: None)
  Receive Date: 20070608
  Receipt Date: 20070525
  Transmission Date: 20071010
  Serious: Yes (Other)
  Sender: FDA-Public Use
  Company Number: US-JNJFOC-20061104290

PATIENT
  Sex: Female
  Weight: 120.2 kg

DRUGS (2)
  1. ORTHO EVRA [Suspect]
     Indication: UTERINE HAEMORRHAGE
     Route: 062
  2. ORTHO EVRA [Suspect]
     Indication: CONTRACEPTION
     Route: 062

REACTIONS (2)
  - DEEP VEIN THROMBOSIS [None]
  - SPLENIC VEIN THROMBOSIS [None]
